FAERS Safety Report 15768006 (Version 3)
Quarter: 2019Q4

REPORT INFORMATION
  Report Type: Spontaneous
  Country: GB (occurrence: GB)
  Receive Date: 20181227
  Receipt Date: 20191104
  Transmission Date: 20200122
  Serious: Yes (Other)
  Sender: FDA-Public Use
  Company Number: GB-MYLANLABS-2018M1096305

PATIENT
  Age: 71 Year
  Sex: Male
  Weight: 108.5 kg

DRUGS (29)
  1. COCODAMOL [Concomitant]
     Active Substance: ACETAMINOPHEN\CODEINE PHOSPHATE
     Dosage: TAKE TWO CAPSULES UP TO FOUR TIMES DAILY ONLY IF REQUIRED 30MG/500MG CAPSULES
     Dates: start: 20180322
  2. METFORMIN [Concomitant]
     Active Substance: METFORMIN HYDROCHLORIDE
     Dosage: 500 MILLIGRAM, QD
     Dates: start: 20180323
  3. METFORMIN [Concomitant]
     Active Substance: METFORMIN HYDROCHLORIDE
     Dosage: 1000 MILLIGRAM, QD
     Dates: start: 20180322, end: 20180411
  4. CLENIL MODULITE [Concomitant]
     Active Substance: BECLOMETHASONE DIPROPIONATE
     Dosage: 400 MICROGRAM, QD
     Dates: start: 20180322, end: 20180522
  5. MST CONTINUS [Concomitant]
     Active Substance: MORPHINE SULFATE
     Dosage: AT 8AM AND 8PM.
     Dates: start: 20180425
  6. EPILIM [Concomitant]
     Active Substance: VALPROATE SODIUM
     Dosage: AT NIGHT
     Dates: start: 20180323
  7. WARFARIN [Concomitant]
     Active Substance: WARFARIN
     Dosage: REFER TO YELLOW BOOK FOR DOSAGE INSTRUCTIONS
     Dates: start: 20180323
  8. ROSUVASTATIN. [Concomitant]
     Active Substance: ROSUVASTATIN
     Dosage: AT NIGHT
     Dates: start: 20180322, end: 20180522
  9. ORAMORPH [Concomitant]
     Active Substance: MORPHINE SULFATE
     Dosage: FOUR HOURLY IF REQUIRED ONLY AND MAXIMUM UP TO FOUR TIMES A DAY 10MG/5ML
     Dates: start: 20180322, end: 20180521
  10. MST CONTINUS [Concomitant]
     Active Substance: MORPHINE SULFATE
     Dosage: 20 MILLIGRAM, QD
     Dates: start: 20180322, end: 20180510
  11. WARFARIN [Concomitant]
     Active Substance: WARFARIN
     Dosage: REFER TO YELLOW BOOK FOR DOSAGE INSTRUCTIONS
     Dates: start: 20180323
  12. FUROSEMIDE. [Concomitant]
     Active Substance: FUROSEMIDE
     Dosage: IN THE MORNING AND AT MIDDAY
     Dates: start: 20180322, end: 20180522
  13. COCODAMOL [Concomitant]
     Active Substance: ACETAMINOPHEN\CODEINE PHOSPHATE
     Dosage: TAKE 2 UP TO 4 TIMES DAILY. 30MG/500MG.
     Dates: start: 20180322, end: 20180418
  14. TEMAZEPAM. [Concomitant]
     Active Substance: TEMAZEPAM
     Indication: PRODUCT USED FOR UNKNOWN INDICATION
     Dosage: 20 MILLIGRAM, PRN
     Route: 048
  15. CLOTRIMAZOLE. [Concomitant]
     Active Substance: CLOTRIMAZOLE
     Dosage: TWO TO THREE TIMES DAILY
     Route: 061
     Dates: start: 20180425
  16. METFORMIN [Concomitant]
     Active Substance: METFORMIN HYDROCHLORIDE
     Dosage: 1500 MILLIGRAM, QD
     Dates: start: 20180411, end: 20180522
  17. METFORMIN [Concomitant]
     Active Substance: METFORMIN HYDROCHLORIDE
     Dosage: 1000 MILLIGRAM, QD
     Dates: start: 20180322, end: 20180522
  18. EPILIM [Concomitant]
     Active Substance: VALPROATE SODIUM
     Dosage: 200 AND 500 TABLETS. AT NIGHT
     Dates: start: 20180322, end: 20180522
  19. WARFARIN [Concomitant]
     Active Substance: WARFARIN
     Dosage: REFER TO YELLOW BOOK FOR DOSAGE INSTRUCTIONS.
     Dates: start: 20180323, end: 20180522
  20. FLUCONAZOLE. [Concomitant]
     Active Substance: FLUCONAZOLE
     Dosage: 1 IMMEDIATELY
     Dates: start: 20180425
  21. RAMIPRIL. [Suspect]
     Active Substance: RAMIPRIL
     Indication: PRODUCT USED FOR UNKNOWN INDICATION
     Dosage: 5 MILLIGRAM
  22. EPILIM [Concomitant]
     Active Substance: VALPROATE SODIUM
     Dosage: AT NIGHT
     Dates: start: 20180323
  23. WARFARIN [Concomitant]
     Active Substance: WARFARIN
     Dosage: REFER TO YELLOW BOOK FOR DOSAGE INSTRUCTIONS
     Dates: start: 20180323
  24. LANSOPRAZOLE. [Concomitant]
     Active Substance: LANSOPRAZOLE
     Dosage: 1 CAPSULE DAILY WHEN REQUIRED
     Dates: start: 20180322, end: 20180522
  25. COCODAMOL [Concomitant]
     Active Substance: ACETAMINOPHEN\CODEINE PHOSPHATE
     Dosage: 1-2 UP TO 4 TIMES DAILY.
     Dates: start: 20180510
  26. VENTOLIN [Concomitant]
     Active Substance: ALBUTEROL SULFATE
     Dosage: 1-2 PUFFS UP TO 4 TIMES DAILY.
     Route: 055
     Dates: start: 20180322, end: 20180522
  27. TEMAZEPAM. [Concomitant]
     Active Substance: TEMAZEPAM
     Dosage: 20 MILLIGRAM, QD
     Route: 048
     Dates: start: 20180322, end: 20180605
  28. CLENIL MODULITE [Concomitant]
     Active Substance: BECLOMETHASONE DIPROPIONATE
     Route: 055
     Dates: start: 20180323
  29. DULOXETINE. [Concomitant]
     Active Substance: DULOXETINE
     Dosage: 40 MILLIGRAM, QD
     Dates: start: 20180323

REACTIONS (1)
  - Syncope [Recovering/Resolving]
